FAERS Safety Report 8208831-7 (Version None)
Quarter: 2012Q1

REPORT INFORMATION
  Report Type: 
  Country: None (occurrence: None)
  Receive Date: 20120314
  Receipt Date: 20120308
  Transmission Date: 20120608
  Serious: Yes (Other)
  Sender: FDA-Public Use
  Company Number: IT-PFIZER INC-2012062694

PATIENT
  Sex: Male

DRUGS (1)
  1. CYTARABINE [Suspect]
     Dosage: UNK

REACTIONS (2)
  - JAUNDICE [None]
  - HYPERAMYLASAEMIA [None]
